FAERS Safety Report 7082920-5 (Version None)
Quarter: 2010Q4

REPORT INFORMATION
  Report Type: 
  Country: None (occurrence: None)
  Receive Date: 20101026
  Receipt Date: 20101014
  Transmission Date: 20110411
  Serious: Yes (Life-Threatening, Hospitalization, Disabling)
  Sender: FDA-Public Use
  Company Number: JHP201000270

PATIENT
  Age: 14 Year
  Sex: Female
  Weight: 48 kg

DRUGS (9)
  1. DANTRIUM [Suspect]
     Indication: NEUROLEPTIC MALIGNANT SYNDROME
     Dosage: 40 MG IN 50 ML SALINE OVER 60 MINUTES, IV DRIP
     Route: 041
     Dates: start: 20100614, end: 20100614
  2. FAMOTIDINE [Concomitant]
  3. KAYTWO (MENATETRENONE) [Concomitant]
  4. SOLU-CORTEF [Concomitant]
  5. CARBENIN (BETAMIPRON, PANIPENEM) [Concomitant]
  6. DORMICUM (NITRAZEPAM) [Concomitant]
  7. RECOMODULIN [Concomitant]
  8. DOPAMINE HCL [Concomitant]
  9. FERON (INTERFERON BETA) [Concomitant]

REACTIONS (3)
  - ACIDOSIS [None]
  - ANAPHYLACTIC SHOCK [None]
  - HYPOXIC-ISCHAEMIC ENCEPHALOPATHY [None]
